FAERS Safety Report 14764320 (Version 1)
Quarter: 2018Q2

REPORT INFORMATION
  Report Type: Spontaneous
  Country: US (occurrence: US)
  Receive Date: 20180416
  Receipt Date: 20180416
  Transmission Date: 20180711
  Serious: No
  Sender: FDA-Public Use
  Company Number: US-009507513-1804USA003803

PATIENT

DRUGS (3)
  1. BRIDION [Suspect]
     Active Substance: SUGAMMADEX
     Dosage: UNK
  2. BRIDION [Suspect]
     Active Substance: SUGAMMADEX
     Dosage: UNK
  3. BRIDION [Suspect]
     Active Substance: SUGAMMADEX
     Dosage: UNK

REACTIONS (3)
  - Product quality issue [Unknown]
  - Product container issue [Unknown]
  - No adverse event [Unknown]
